FAERS Safety Report 9303160 (Version 1)
Quarter: 2013Q2

REPORT INFORMATION
  Report Type: Spontaneous
  Country: JP (occurrence: JP)
  Receive Date: 20130522
  Receipt Date: 20130522
  Transmission Date: 20140414
  Serious: No
  Sender: FDA-Public Use
  Company Number: JP-JNJFOC-20130505962

PATIENT
  Sex: 0

DRUGS (2)
  1. DUROTEP MT [Suspect]
     Indication: CANCER PAIN
     Dosage: 100 UG/HOUR PLUS 75 UG/HOUR
     Route: 062
  2. LOXONIN [Concomitant]
     Indication: CANCER PAIN
     Route: 065

REACTIONS (2)
  - Inadequate analgesia [Unknown]
  - Incorrect drug administration duration [Unknown]
